FAERS Safety Report 10821909 (Version 1)
Quarter: 2015Q1

REPORT INFORMATION
  Report Type: Report from Study
  Country: US (occurrence: US)
  Receive Date: 20150218
  Receipt Date: 20150218
  Transmission Date: 20150721
  Serious: Yes (Other)
  Sender: FDA-Public Use
  Company Number: US-ABBVIE-14K-163-1301890-00

PATIENT
  Age: 57 Year
  Sex: Male

DRUGS (3)
  1. HUMIRA [Suspect]
     Active Substance: ADALIMUMAB
     Route: 065
     Dates: start: 20141107
  2. HUMIRA [Suspect]
     Active Substance: ADALIMUMAB
     Indication: CROHN^S DISEASE
     Route: 065
     Dates: start: 20141010, end: 20141010
  3. HUMIRA [Suspect]
     Active Substance: ADALIMUMAB
     Route: 065
     Dates: start: 20141024, end: 20141024

REACTIONS (19)
  - Back pain [Unknown]
  - Pyrexia [Recovering/Resolving]
  - Arthralgia [Not Recovered/Not Resolved]
  - Chest pain [Unknown]
  - Injection site pain [Not Recovered/Not Resolved]
  - Pain [Unknown]
  - Night sweats [Unknown]
  - Influenza [Not Recovered/Not Resolved]
  - Pain of skin [Unknown]
  - Oropharyngeal pain [Unknown]
  - Dysphonia [Unknown]
  - Injection site pain [Recovered/Resolved]
  - Fatigue [Unknown]
  - Malaise [Unknown]
  - Chest discomfort [Unknown]
  - Nephrolithiasis [Not Recovered/Not Resolved]
  - Headache [Not Recovered/Not Resolved]
  - Nasopharyngitis [Unknown]
  - Myalgia [Unknown]

NARRATIVE: CASE EVENT DATE: 201410
